FAERS Safety Report 9250421 (Version 1)
Quarter: 2013Q1

REPORT INFORMATION
  Report Type: Spontaneous
  Country: US (occurrence: None)
  Receive Date: 20130305
  Receipt Date: 20130305
  Transmission Date: 20140127
  Serious: Yes (Other)
  Sender: FDA-Public Use
  Company Number: 163-21880-12042769

PATIENT
  Age: 67 Year
  Sex: Female
  Weight: 67.13 kg

DRUGS (7)
  1. REVLIMID [Concomitant]
     Indication: PLASMA CELL MYELOMA
     Dosage: 1 IN 1 D
     Route: 048
     Dates: start: 20111130
  2. ASPIRIN (ACETYLSALICYLIC ACID) [Concomitant]
  3. CALCIUM WITH VITAMIN D [Concomitant]
  4. CIPROFLOXACIN (CIPROFLOXACIN) [Concomitant]
  5. DULCOLAX (BISACODYL) [Concomitant]
  6. PREDNISOLONE (PREDNISOLONE) [Concomitant]
  7. VITAMIN D (ERGOCALCIFEROL) [Concomitant]

REACTIONS (1)
  - Cataract [None]
